FAERS Safety Report 16392526 (Version 1)
Quarter: 2019Q2

REPORT INFORMATION
  Report Type: Spontaneous
  Country: CN (occurrence: CN)
  Receive Date: 20190605
  Receipt Date: 20190605
  Transmission Date: 20190711
  Serious: Yes (Hospitalization, Other)
  Sender: FDA-Public Use
  Company Number: CN-LUPIN PHARMACEUTICALS INC.-2019-03530

PATIENT
  Age: 22 Year
  Sex: Female
  Weight: 51 kg

DRUGS (8)
  1. TOPIRAMATE. [Interacting]
     Active Substance: TOPIRAMATE
     Dosage: 75 MILLIGRAM, QD
     Route: 065
  2. QUETIAPINE. [Interacting]
     Active Substance: QUETIAPINE
     Dosage: 500 MILLIGRAM, QD (ESCALATED UP TO 500 MG PER NIGHT TO STABILIZE HER MOOD)
     Route: 065
  3. QUETIAPINE. [Interacting]
     Active Substance: QUETIAPINE
     Indication: DEPRESSION
     Dosage: 300 MILLIGRAM, QD (GRADUALLY INCREASED) AT NIGHT
     Route: 065
  4. TOPIRAMATE. [Interacting]
     Active Substance: TOPIRAMATE
     Indication: BINGE EATING
     Dosage: 25 MILLIGRAM, QD (FOUR DAYS)
     Route: 065
  5. QUETIAPINE. [Suspect]
     Active Substance: QUETIAPINE
     Indication: BIPOLAR II DISORDER
     Dosage: UNK
     Route: 065
  6. TOPIRAMATE. [Interacting]
     Active Substance: TOPIRAMATE
     Dosage: 50 MILLIGRAM, QD
     Route: 065
  7. TOPIRAMATE. [Interacting]
     Active Substance: TOPIRAMATE
     Dosage: 50 MILLIGRAM, QD (BED SYMPTOMS RECURRED AND THE DOSE OF TOPIRAMATE WAS AGAIN INCREASED)
     Route: 065
  8. TOPIRAMATE. [Interacting]
     Active Substance: TOPIRAMATE
     Dosage: 25 MILLIGRAM, QD (DOSE DECREAED)
     Route: 065

REACTIONS (2)
  - Mania [Recovered/Resolved]
  - Drug interaction [Unknown]
